FAERS Safety Report 7763554-3 (Version None)
Quarter: 2011Q3

REPORT INFORMATION
  Report Type: 
  Country: None (occurrence: None)
  Receive Date: 20110920
  Receipt Date: 20110907
  Transmission Date: 20111222
  Serious: Yes (Hospitalization)
  Sender: FDA-Public Use
  Company Number: ES-GENENTECH-324393

PATIENT
  Age: 55 Year
  Sex: Female

DRUGS (3)
  1. LUCENTIS [Suspect]
     Indication: PRODUCT USED FOR UNKNOWN INDICATION
     Route: 031
  2. LUCENTIS [Suspect]
     Route: 031
  3. LUCENTIS [Suspect]
     Dosage: UNK UNK, UNKNOWN
     Route: 031

REACTIONS (1)
  - MASS [None]
